FAERS Safety Report 9726010 (Version 2)
Quarter: 2013Q4

REPORT INFORMATION
  Report Type: Spontaneous
  Country: FR (occurrence: FR)
  Receive Date: 20131203
  Receipt Date: 20131203
  Transmission Date: 20140711
  Serious: Yes (Death, Life-Threatening)
  Sender: FDA-Public Use
  Company Number: FR-SA-2013SA097836

PATIENT
  Sex: Male

DRUGS (20)
  1. OFLOCET [Suspect]
     Indication: COUGH
     Route: 065
     Dates: start: 20130729, end: 20130821
  2. OFLOCET [Suspect]
     Indication: PYREXIA
     Route: 065
     Dates: start: 20130729, end: 20130821
  3. RULID [Suspect]
     Indication: PRODUCT USED FOR UNKNOWN INDICATION
     Route: 065
     Dates: start: 20130821, end: 20130829
  4. CORDARONE [Suspect]
     Indication: PRODUCT USED FOR UNKNOWN INDICATION
     Route: 065
     Dates: start: 20130828
  5. LASILIX [Suspect]
     Indication: PRODUCT USED FOR UNKNOWN INDICATION
     Route: 065
     Dates: start: 20130828, end: 20130927
  6. MOPRAL [Suspect]
     Indication: PRODUCT USED FOR UNKNOWN INDICATION
     Route: 065
     Dates: end: 20130827
  7. INEXIUM [Suspect]
     Indication: PRODUCT USED FOR UNKNOWN INDICATION
     Route: 065
     Dates: end: 20130820
  8. ROCEPHINE [Suspect]
     Indication: RESPIRATORY DISTRESS
     Route: 065
     Dates: start: 20130818, end: 20130821
  9. CIFLOX [Suspect]
     Indication: RESPIRATORY DISTRESS
     Route: 065
     Dates: start: 20130818, end: 20130821
  10. TAZOCILLINE [Suspect]
     Indication: PRODUCT USED FOR UNKNOWN INDICATION
     Route: 065
     Dates: start: 20130821, end: 20130927
  11. ARESTAL [Concomitant]
     Indication: COUGH
     Dates: start: 20130729
  12. ARESTAL [Concomitant]
     Indication: PYREXIA
     Dates: start: 20130729
  13. PNEUMOREL [Concomitant]
     Indication: COUGH
     Dates: start: 20130729
  14. PNEUMOREL [Concomitant]
     Indication: PYREXIA
     Dates: start: 20130729
  15. DEXERYL [Concomitant]
     Indication: COUGH
     Dates: start: 20130729
  16. DEXERYL [Concomitant]
     Indication: PYREXIA
     Dates: start: 20130729
  17. MONO-TILDIEM [Concomitant]
     Dates: end: 20130927
  18. JOSIR [Concomitant]
     Dates: end: 20130927
  19. INORIAL [Concomitant]
     Dates: end: 20130927
  20. SPIRIVA [Concomitant]
     Dates: end: 20130927

REACTIONS (5)
  - Multi-organ failure [Fatal]
  - Death [Fatal]
  - Agranulocytosis [Not Recovered/Not Resolved]
  - Septic shock [Not Recovered/Not Resolved]
  - Bone marrow failure [Not Recovered/Not Resolved]
